FAERS Safety Report 18307326 (Version 1)
Quarter: 2020Q3

REPORT INFORMATION
  Report Type: Spontaneous
  Country: US (occurrence: US)
  Receive Date: 20200924
  Receipt Date: 20200924
  Transmission Date: 20201103
  Serious: No
  Sender: FDA-Public Use
  Company Number: US-ALVOGEN-2020-ALVOGEN-113628

PATIENT
  Sex: Female

DRUGS (3)
  1. GRALISE [Suspect]
     Active Substance: GABAPENTIN
     Indication: NEURALGIA
     Dosage: 600 MG, QD, TAKE ONE TABLET BY MOUTH WITH EVENING MEALS ON DAYS 2?6
     Route: 048
  2. GRALISE [Suspect]
     Active Substance: GABAPENTIN
     Dosage: 1800 MG, QD, THREE TABLETS ON DAYS 15?30
     Route: 048
  3. GRALISE [Suspect]
     Active Substance: GABAPENTIN
     Indication: NEURITIS
     Dosage: 1200 MG, QD, TWO TABLETS ON DAYS 7?14
     Route: 048

REACTIONS (3)
  - Product use in unapproved indication [Unknown]
  - Somnolence [Not Recovered/Not Resolved]
  - Drug titration error [Unknown]
